FAERS Safety Report 25710416 (Version 1)
Quarter: 2025Q3

REPORT INFORMATION
  Report Type: Spontaneous
  Country: US (occurrence: None)
  Receive Date: 20250820
  Receipt Date: 20250820
  Transmission Date: 20251020
  Serious: Yes (Other)
  Sender: FDA-CTU
  Company Number: None

PATIENT
  Age: 60 Year
  Sex: Female

DRUGS (2)
  1. XELJANZ [Suspect]
     Active Substance: TOFACITINIB CITRATE
  2. XELJANZ [Concomitant]
     Active Substance: TOFACITINIB CITRATE
     Dates: start: 20250716, end: 20250718

REACTIONS (4)
  - Diarrhoea [None]
  - Abdominal pain [None]
  - Gastrooesophageal reflux disease [None]
  - Erosive oesophagitis [None]

NARRATIVE: CASE EVENT DATE: 20250818
